FAERS Safety Report 22100660 (Version 1)
Quarter: 2023Q1

REPORT INFORMATION
  Report Type: Spontaneous
  Country: DE (occurrence: DE)
  Receive Date: 20230316
  Receipt Date: 20230316
  Transmission Date: 20230418
  Serious: Yes (Death, Hospitalization, Other)
  Sender: FDA-Public Use
  Company Number: None

PATIENT
  Age: 51 Year
  Sex: Male
  Weight: 125 kg

DRUGS (2)
  1. CAPECITABINE [Suspect]
     Active Substance: CAPECITABINE
     Indication: Chemotherapy
     Dosage: CAPECITABIN 2,5 GR 1-0-1 D 1-14, DURATION : 14 DAYS
     Route: 065
     Dates: start: 20230106, end: 20230120
  2. OXALIPLATIN [Suspect]
     Active Substance: OXALIPLATIN
     Indication: Chemotherapy
     Dosage: 130 MG/M
     Route: 065
     Dates: start: 20230106, end: 20230106

REACTIONS (3)
  - Hepatic failure [Fatal]
  - Pneumatosis intestinalis [Fatal]
  - Disorientation [Unknown]

NARRATIVE: CASE EVENT DATE: 20230124
